FAERS Safety Report 9028221 (Version 1)
Quarter: 2013Q1

REPORT INFORMATION
  Report Type: Spontaneous
  Country: US (occurrence: None)
  Receive Date: 20130115
  Receipt Date: 20130115
  Transmission Date: 20140127
  Serious: Yes (Other)
  Sender: FDA-Public Use
  Company Number: None

PATIENT
  Age: 6 Year
  Sex: Male
  Weight: 23.59 kg

DRUGS (1)
  1. TAMIFLU [Suspect]
     Indication: INFLUENZA LIKE ILLNESS
     Route: 048
     Dates: start: 20121218, end: 20121220

REACTIONS (5)
  - Hallucination, auditory [None]
  - Violence-related symptom [None]
  - Diarrhoea [None]
  - Abdominal pain upper [None]
  - Psychomotor hyperactivity [None]
